APPROVED DRUG PRODUCT: RESCULA
Active Ingredient: UNOPROSTONE ISOPROPYL
Strength: 0.15% **Federal Register determination that product was not discontinued or withdrawn for safety or effectiveness reasons**
Dosage Form/Route: SOLUTION/DROPS;OPHTHALMIC
Application: N021214 | Product #001
Applicant: SUCAMPO PHARMA AMERICAS LLC
Approved: Aug 3, 2000 | RLD: Yes | RS: No | Type: DISCN